FAERS Safety Report 6138690-8 (Version None)
Quarter: 2009Q1

REPORT INFORMATION
  Report Type: 
  Country: None (occurrence: None)
  Receive Date: 20090331
  Receipt Date: 20090319
  Transmission Date: 20090719
  Serious: Yes (Other)
  Sender: FDA-Public Use
  Company Number: CR-ELI_LILLY_AND_COMPANY-CR200903005430

PATIENT
  Age: 49 Year
  Sex: Female

DRUGS (3)
  1. OLANZAPINE [Suspect]
     Indication: DEPRESSION
     Dosage: 10 MG, DAILY (1/D)
     Route: 065
     Dates: start: 20050101
  2. METFORMIN HCL [Concomitant]
     Dosage: UNK, UNKNOWN
     Route: 065
  3. PLAVIX [Concomitant]
     Dosage: UNK, UNKNOWN
     Route: 065

REACTIONS (2)
  - AORTIC OCCLUSION [None]
  - MYOCARDIAL INFARCTION [None]
